FAERS Safety Report 5876264-4 (Version None)
Quarter: 2008Q3

REPORT INFORMATION
  Report Type: 
  Country: None (occurrence: None)
  Receive Date: 20080910
  Receipt Date: 20080905
  Transmission Date: 20090109
  Serious: Yes (Hospitalization, Other)
  Sender: FDA-Public Use
  Company Number: US-ASTRAZENECA-2003UW09606

PATIENT
  Age: 59 Year
  Sex: Male
  Weight: 70.8 kg

DRUGS (27)
  1. SEROQUEL [Suspect]
     Indication: SCHIZOPHRENIA
     Route: 048
     Dates: start: 20000101
  2. SEROQUEL [Suspect]
     Indication: AGITATION
     Route: 048
     Dates: start: 20000101
  3. SEROQUEL [Suspect]
     Dosage: 25-150 MG DAILY
     Route: 048
     Dates: start: 20011113, end: 20030729
  4. SEROQUEL [Suspect]
     Dosage: 25-150 MG DAILY
     Route: 048
     Dates: start: 20011113, end: 20030729
  5. SEROQUEL [Suspect]
     Route: 048
     Dates: start: 20080601
  6. SEROQUEL [Suspect]
     Route: 048
     Dates: start: 20080601
  7. SEROQUEL [Suspect]
     Route: 048
     Dates: start: 20080801
  8. SEROQUEL [Suspect]
     Route: 048
     Dates: start: 20080801
  9. ZYPREXA [Concomitant]
  10. TAMSULOSIN HCL [Concomitant]
  11. TRAZODONE HCL [Concomitant]
  12. SODIUM POLYSTYRENE [Concomitant]
  13. SIMVASTATIN [Concomitant]
  14. CALCITRIOL [Concomitant]
  15. CALCIUM ACETATE [Concomitant]
  16. AMLODIPINE [Concomitant]
  17. OMEPRAZOLE [Concomitant]
  18. INSULIN INSULATARD NPH NORDISK [Concomitant]
  19. SODIUM BICARBONATE [Concomitant]
  20. THYROID TAB [Concomitant]
  21. DARBEPOETIN ALPHA [Concomitant]
  22. ACETAMINOPHEN [Concomitant]
  23. ERGOCALCIFEROL [Concomitant]
  24. LEVOTHYROXINE SODIUM [Concomitant]
  25. METOPROLOL SUCCINATE [Concomitant]
  26. CLOPIDOGREL [Concomitant]
  27. SODIUM CHLORIDE [Concomitant]

REACTIONS (24)
  - ANAEMIA [None]
  - ARTHRALGIA [None]
  - ASTHENIA [None]
  - BLOOD GLUCOSE INCREASED [None]
  - BLOOD OSMOLARITY DECREASED [None]
  - CEREBROVASCULAR ACCIDENT [None]
  - CONSTIPATION [None]
  - FALL [None]
  - GAIT DISTURBANCE [None]
  - GASTRITIS [None]
  - GASTRODUODENITIS [None]
  - HEART RATE INCREASED [None]
  - HYPERLIPIDAEMIA [None]
  - HYPERTENSION [None]
  - HYPONATRAEMIA [None]
  - OEDEMA PERIPHERAL [None]
  - PROTEINURIA [None]
  - RED BLOOD CELL COUNT DECREASED [None]
  - RENAL DISORDER [None]
  - URINARY RETENTION [None]
  - VISION BLURRED [None]
  - WEIGHT DECREASED [None]
  - WEIGHT INCREASED [None]
  - WHITE BLOOD CELL COUNT INCREASED [None]
